FAERS Safety Report 9030790 (Version 3)
Quarter: 2013Q1

REPORT INFORMATION
  Report Type: Report from Study
  Country: CA (occurrence: CA)
  Receive Date: 20130123
  Receipt Date: 20130125
  Transmission Date: 20140127
  Serious: Yes (Hospitalization, Other)
  Sender: FDA-Public Use
  Company Number: CA-ROCHE-1177352

PATIENT
  Sex: Male
  Weight: 90 kg

DRUGS (1)
  1. AVASTIN [Suspect]
     Indication: GLIOBLASTOMA
     Route: 042
     Dates: start: 20120831

REACTIONS (7)
  - Amnesia [Recovered/Resolved]
  - Neoplasm [Unknown]
  - Hypernatraemia [Unknown]
  - Convulsion [Recovered/Resolved]
  - Drug ineffective [Unknown]
  - Nasopharyngitis [Recovering/Resolving]
  - Neutrophil count decreased [Unknown]
